FAERS Safety Report 24843112 (Version 1)
Quarter: 2025Q1

REPORT INFORMATION
  Report Type: Report from Study
  Country: US (occurrence: US)
  Receive Date: 20250115
  Receipt Date: 20250115
  Transmission Date: 20250409
  Serious: No
  Sender: HRA PHARMA
  Company Number: US-ORG100014127-2024000352

PATIENT
  Age: 69 Year
  Sex: Male

DRUGS (9)
  1. LYSODREN [Suspect]
     Active Substance: MITOTANE
     Indication: Adrenal insufficiency
     Dosage: TAKE 4 TABLETS BY MOUTH TWO TIMES PER DAY
     Route: 048
     Dates: start: 20240314
  2. LYSODREN [Suspect]
     Active Substance: MITOTANE
     Indication: Adrenal insufficiency
     Dosage: TAKE 5 TABLETS BY MOUTH TWO TIMES PER DAY UNTIL REEVALUATION
     Route: 048
  3. LYSODREN [Suspect]
     Active Substance: MITOTANE
     Indication: Adrenal insufficiency
     Dosage: 1500MG, TO BE TAKEN BID
     Route: 048
     Dates: start: 202407
  4. clobetasol propionateointment [Concomitant]
     Indication: Product used for unknown indication
  5. hydrocortisone 10mg [Concomitant]
     Indication: Product used for unknown indication
  6. ONDANSETRON [Concomitant]
     Active Substance: ONDANSETRON
     Indication: Product used for unknown indication
  7. METOPROLOL SUCCINATE [Concomitant]
     Active Substance: METOPROLOL SUCCINATE
     Indication: Product used for unknown indication
  8. LOSARTAN [Concomitant]
     Active Substance: LOSARTAN
     Indication: Product used for unknown indication
  9. simvastatin tablet 20mg [Concomitant]
     Indication: Product used for unknown indication

REACTIONS (3)
  - Renal disorder [Recovered/Resolved]
  - Liver disorder [Recovered/Resolved]
  - Off label use [Not Recovered/Not Resolved]

NARRATIVE: CASE EVENT DATE: 20240314
